FAERS Safety Report 15764210 (Version 2)
Quarter: 2019Q1

REPORT INFORMATION
  Report Type: Report from Study
  Country: None (occurrence: US)
  Receive Date: 20181227
  Receipt Date: 20190103
  Transmission Date: 20190417
  Serious: Yes (Hospitalization, Other)
  Sender: FDA-Public Use
  Company Number: US-ABBVIE-18S-163-2601834-00

PATIENT
  Age: 81 Year
  Sex: Male
  Weight: 81.72 kg

DRUGS (4)
  1. CREON [Suspect]
     Active Substance: PANCRELIPASE AMYLASE\PANCRELIPASE LIPASE\PANCRELIPASE PROTEASE
     Indication: PANCREATIC FAILURE
     Dosage: 1 CAPSULE WITH MEALS
     Route: 048
  2. SODIUM BICARBONATE. [Concomitant]
     Active Substance: SODIUM BICARBONATE
     Indication: BLOOD DISORDER PROPHYLAXIS
  3. CALCITRIOL. [Concomitant]
     Active Substance: CALCITRIOL
     Indication: CHRONIC KIDNEY DISEASE
  4. ELIQUIS [Concomitant]
     Active Substance: APIXABAN
     Indication: CARDIAC DISORDER

REACTIONS (19)
  - Palpitations [Not Recovered/Not Resolved]
  - Erythema [Unknown]
  - Eczema [Not Recovered/Not Resolved]
  - Gastrooesophageal reflux disease [Not Recovered/Not Resolved]
  - Chronic kidney disease [Unknown]
  - Muscular weakness [Unknown]
  - Rash macular [Unknown]
  - Papule [Not Recovered/Not Resolved]
  - Rash [Recovered/Resolved]
  - Pruritus [Unknown]
  - Cellulitis [Unknown]
  - Joint swelling [Unknown]
  - Spinal column stenosis [Unknown]
  - Gait disturbance [Unknown]
  - Burning sensation [Unknown]
  - Pyrexia [Unknown]
  - Endocarditis [Recovered/Resolved]
  - Urinary tract infection [Recovered/Resolved]
  - Nerve compression [Unknown]

NARRATIVE: CASE EVENT DATE: 2016
